FAERS Safety Report 9238633 (Version 1)
Quarter: 2013Q1

REPORT INFORMATION
  Report Type: Spontaneous
  Country: US (occurrence: None)
  Receive Date: 20121106
  Receipt Date: 20121106
  Transmission Date: 20140127
  Serious: No
  Sender: FDA-Public Use
  Company Number: 1000037701

PATIENT
  Age: 46 Year
  Sex: Female

DRUGS (6)
  1. DALIRESP [Suspect]
     Indication: CHRONIC OBSTRUCTIVE PULMONARY DISEASE
     Route: 048
     Dates: start: 20120730
  2. CYMBALTA [Concomitant]
  3. LOSARTAN (LOSARTAN) (LOSARTAN) [Concomitant]
  4. OMEPRAZOLE (OMEPRAZOLE) (OMEPRAZOLE) [Concomitant]
  5. VERAPAMIL (VERAPAMIL) (VERAPAMIL) [Concomitant]
  6. FUROSEMIDE [Concomitant]

REACTIONS (2)
  - Diarrhoea [None]
  - Headache [None]
